FAERS Safety Report 8453985-0 (Version None)
Quarter: 2012Q2

REPORT INFORMATION
  Report Type: 
  Country: None (occurrence: None)
  Receive Date: 20120323
  Receipt Date: 20110914
  Transmission Date: 20120825
  Serious: Yes (Other)
  Sender: FDA-Public Use
  Company Number: 163-21880-11091901

PATIENT
  Age: 76 Year
  Sex: Female

DRUGS (1)
  1. LENALIDOMIDE [Suspect]
     Indication: B-CELL LYMPHOMA
     Dosage: 10 MG, X 21 DAYS, PO
     Route: 048
     Dates: start: 20010801, end: 20110901

REACTIONS (2)
  - DIARRHOEA [None]
  - DEHYDRATION [None]
